FAERS Safety Report 6285233-4 (Version None)
Quarter: 2009Q3

REPORT INFORMATION
  Report Type: 
  Country: None (occurrence: None)
  Receive Date: 20090727
  Receipt Date: 20090724
  Transmission Date: 20100115
  Serious: Yes (Hospitalization)
  Sender: FDA-Public Use
  Company Number: FR-RB-018362-09

PATIENT
  Age: 33 Year
  Sex: Male

DRUGS (6)
  1. SUBUTEX [Suspect]
     Indication: DRUG USE FOR UNKNOWN INDICATION
     Dosage: DOSE UNKNOWN
     Route: 042
  2. HEROIN [Suspect]
     Indication: DRUG USE FOR UNKNOWN INDICATION
     Route: 042
     Dates: start: 20060101
  3. SKENAN [Suspect]
     Indication: DRUG USE FOR UNKNOWN INDICATION
     Route: 042
     Dates: start: 20090301
  4. SKENAN [Suspect]
     Dosage: DOSE UNKNOWN
     Route: 042
  5. METHADONE HCL [Suspect]
     Indication: DRUG USE FOR UNKNOWN INDICATION
     Dosage: DOSING INFORMATION UNKNOWN
     Route: 065
  6. BENZODIAZIPINE [Suspect]
     Indication: DRUG USE FOR UNKNOWN INDICATION
     Dosage: DOSING INFORMATION UNKNOWN
     Route: 065

REACTIONS (11)
  - ABASIA [None]
  - DRUG ABUSE [None]
  - ENDOCARDITIS [None]
  - INCORRECT ROUTE OF DRUG ADMINISTRATION [None]
  - MYOSITIS [None]
  - PAIN [None]
  - POLYSUBSTANCE DEPENDENCE [None]
  - PYREXIA [None]
  - SCIATICA [None]
  - SEPSIS [None]
  - SUBSTANCE ABUSE [None]
